FAERS Safety Report 23622987 (Version 1)
Quarter: 2024Q1

REPORT INFORMATION
  Report Type: Spontaneous
  Country: US (occurrence: US)
  Receive Date: 20240312
  Receipt Date: 20240312
  Transmission Date: 20240409
  Serious: Yes (Hospitalization)
  Sender: FDA-Public Use
  Company Number: US-BRISTOL-MYERS SQUIBB COMPANY-2024-038233

PATIENT
  Age: 69 Year
  Sex: Male

DRUGS (1)
  1. LENALIDOMIDE [Suspect]
     Active Substance: LENALIDOMIDE
     Indication: Non-Hodgkin^s lymphoma
     Dosage: FREQUENCY: TAKE 1 CAPSULE WHOLE W/ WATER, W/ OR W/OUT FOOD AT THE SAME TIME ON DAYS 1-21 OF EACH 28
     Route: 048
     Dates: start: 20231211

REACTIONS (1)
  - Illness [Not Recovered/Not Resolved]
